FAERS Safety Report 8123001-9 (Version None)
Quarter: 2012Q1

REPORT INFORMATION
  Report Type: 
  Country: None (occurrence: None)
  Receive Date: 20120208
  Receipt Date: 20120202
  Transmission Date: 20120608
  Serious: Yes (Hospitalization, Disabling)
  Sender: FDA-Public Use
  Company Number: US-CELGENEUS-163-21880-12020320

PATIENT
  Sex: Male
  Weight: 67.192 kg

DRUGS (9)
  1. REVLIMID [Suspect]
     Dosage: 10 MILLIGRAM
     Route: 048
     Dates: start: 20111001, end: 20120105
  2. AVODART [Concomitant]
     Route: 065
  3. PRADAXA [Concomitant]
     Route: 065
  4. DEXAMETHASONE [Concomitant]
     Dosage: 20 MILLIGRAM
     Route: 065
     Dates: start: 20111027
  5. AZOR [Concomitant]
     Route: 065
  6. METOPROLOL [Concomitant]
     Route: 065
  7. LIPITOR [Concomitant]
     Route: 065
  8. DEXAMETHASONE [Concomitant]
     Dosage: 40 MILLIGRAM
     Route: 065
  9. REVLIMID [Suspect]
     Indication: MULTIPLE MYELOMA
     Dosage: 25 MILLIGRAM
     Route: 048
     Dates: start: 20110620

REACTIONS (3)
  - LYMPHOEDEMA [None]
  - CELLULITIS [None]
  - PAIN [None]
